FAERS Safety Report 19689428 (Version 1)
Quarter: 2021Q3

REPORT INFORMATION
  Report Type: Spontaneous
  Country: US (occurrence: US)
  Receive Date: 20210812
  Receipt Date: 20210812
  Transmission Date: 20211014
  Serious: No
  Sender: FDA-Public Use
  Company Number: US-TEVA-2021-US-1940499

PATIENT
  Age: 75 Year
  Sex: Female

DRUGS (2)
  1. PENICILLIN [Suspect]
     Active Substance: PENICILLIN
     Route: 065
  2. NIACIN. [Suspect]
     Active Substance: NIACIN
     Route: 065

REACTIONS (1)
  - Drug hypersensitivity [Unknown]
